FAERS Safety Report 8049556-0 (Version None)
Quarter: 2012Q1

REPORT INFORMATION
  Report Type: 
  Country: None (occurrence: None)
  Receive Date: 20120111
  Receipt Date: 20120105
  Transmission Date: 20120608
  Serious: Yes (Other)
  Sender: FDA-Public Use
  Company Number: 2012MA000223

PATIENT
  Age: 62 Year
  Sex: Male

DRUGS (3)
  1. ZOLPIDEM [Concomitant]
  2. FINASTERIDE [Suspect]
     Indication: PROSTATIC SPECIFIC ANTIGEN INCREASED
     Dosage: 5 MG ; QD PO
     Route: 048
     Dates: start: 20090101
  3. FINASTERIDE [Suspect]
     Indication: PROSTATOMEGALY
     Dosage: 5 MG ; QD PO
     Route: 048
     Dates: start: 20090101

REACTIONS (1)
  - SUBDURAL HAEMATOMA [None]
